FAERS Safety Report 7470220-0 (Version None)
Quarter: 2011Q2

REPORT INFORMATION
  Report Type: 
  Country: None (occurrence: None)
  Receive Date: 20110510
  Receipt Date: 20110503
  Transmission Date: 20111010
  Serious: Yes (Hospitalization)
  Sender: FDA-Public Use
  Company Number: FR-PFIZER INC-2011095440

PATIENT
  Age: 46 Year
  Sex: Male

DRUGS (1)
  1. SIROLIMUS [Suspect]
     Indication: IMMUNOSUPPRESSANT DRUG THERAPY
     Dosage: UNK
     Route: 048
     Dates: start: 20060324

REACTIONS (3)
  - COUGH [None]
  - PYREXIA [None]
  - C-REACTIVE PROTEIN INCREASED [None]
